FAERS Safety Report 5428367-6 (Version None)
Quarter: 2007Q3

REPORT INFORMATION
  Report Type: 
  Country: None (occurrence: None)
  Receive Date: 20070824
  Receipt Date: 20070813
  Transmission Date: 20080115
  Serious: Yes (Hospitalization, Disabling)
  Sender: FDA-Public Use
  Company Number: RENA-12258

PATIENT
  Age: 42 Year
  Sex: Male
  Weight: 65 kg

DRUGS (6)
  1. RENAGEL [Suspect]
     Indication: HYPERPHOSPHATAEMIA
  2. FABRAZYME [Suspect]
     Indication: FABRY'S DISEASE
     Dosage: 65 MG Q2WKS IV
     Route: 042
     Dates: start: 20061107, end: 20070717
  3. AMLODIPINE [Concomitant]
  4. PHOSLO. MFR: BRAINTREE [Concomitant]
  5. NEPHROCAPS. MFR: FLEMING AND COMPANY [Concomitant]
  6. COZAAR. MFR: MERCK SHARP + DOME [Concomitant]

REACTIONS (1)
  - CEREBROVASCULAR ACCIDENT [None]
